FAERS Safety Report 5191631-2 (Version None)
Quarter: 2006Q4

REPORT INFORMATION
  Report Type: 
  Country: None (occurrence: None)
  Receive Date: 20061219
  Receipt Date: 20061206
  Transmission Date: 20070319
  Serious: Yes (Hospitalization)
  Sender: FDA-Public Use
  Company Number: 2006134729

PATIENT
  Age: 45 Year
  Sex: Female

DRUGS (3)
  1. FELDENE [Suspect]
     Indication: INFLAMMATION
     Dates: start: 20030101, end: 20030101
  2. GABAPENTIN [Concomitant]
  3. AMITRIPTYLINE HCL [Concomitant]

REACTIONS (3)
  - DRUG INEFFECTIVE [None]
  - INTERVERTEBRAL DISC PROTRUSION [None]
  - OSTEITIS [None]
